FAERS Safety Report 16154063 (Version 4)
Quarter: 2021Q1

REPORT INFORMATION
  Report Type: Report from Study
  Country: CA (occurrence: CA)
  Receive Date: 20190403
  Receipt Date: 20210329
  Transmission Date: 20210419
  Serious: Yes (Hospitalization)
  Sender: FDA-Public Use
  Company Number: CA-BIOGEN-2019BI00719959

PATIENT
  Age: 47 Year
  Sex: Female

DRUGS (6)
  1. AVONEX [Suspect]
     Active Substance: INTERFERON BETA-1A
     Indication: MULTIPLE SCLEROSIS
     Dosage: TITRATION DOSE
     Route: 030
     Dates: start: 20160122, end: 20160128
  2. AVONEX [Suspect]
     Active Substance: INTERFERON BETA-1A
     Dosage: MAINTENANCE DOSE
     Dates: start: 20160212, end: 20160218
  3. AVONEX [Suspect]
     Active Substance: INTERFERON BETA-1A
     Dosage: TITRATION DOSE
     Route: 030
     Dates: start: 20160129, end: 20160204
  4. AVONEX PEN [Suspect]
     Active Substance: INTERFERON BETA-1A
     Indication: MULTIPLE SCLEROSIS
     Dosage: MAINTENANCE DOSE
     Route: 030
     Dates: start: 20160219
  5. AVONEX [Suspect]
     Active Substance: INTERFERON BETA-1A
     Indication: MULTIPLE SCLEROSIS
     Route: 030
     Dates: start: 20160122, end: 20210319
  6. AVONEX [Suspect]
     Active Substance: INTERFERON BETA-1A
     Dosage: TITRATION DOSE
     Route: 030
     Dates: start: 20160205, end: 20160211

REACTIONS (1)
  - Multiple sclerosis relapse [Unknown]

NARRATIVE: CASE EVENT DATE: 20181011
